FAERS Safety Report 25806370 (Version 1)
Quarter: 2025Q3

REPORT INFORMATION
  Report Type: Spontaneous
  Country: EG (occurrence: EG)
  Receive Date: 20250916
  Receipt Date: 20250916
  Transmission Date: 20251021
  Serious: Yes (Life-Threatening, Hospitalization, Other)
  Sender: HIKMA
  Company Number: EG-HIKMA PHARMACEUTICALS-EG-H14001-25-10340

PATIENT
  Age: 54 Year
  Sex: Female
  Weight: 75 kg

DRUGS (6)
  1. LEUCOVORIN CALCIUM [Suspect]
     Active Substance: LEUCOVORIN CALCIUM
     Indication: Colon cancer metastatic
     Dosage: 340 MILLIGRAM, QOW
     Route: 041
  2. LEUCOVORIN CALCIUM [Suspect]
     Active Substance: LEUCOVORIN CALCIUM
     Dosage: 340 MILLIGRAM, QOW
     Route: 041
     Dates: start: 20250722
  3. OXALIPLATIN [Suspect]
     Active Substance: OXALIPLATIN
     Indication: Colon cancer metastatic
     Dosage: 144.5 MILLIGRAM, QOW
     Route: 041
  4. OXALIPLATIN [Suspect]
     Active Substance: OXALIPLATIN
     Dosage: 144.5 MILLIGRAM, QOW
     Route: 041
     Dates: start: 20250722
  5. FLUOROURACIL [Suspect]
     Active Substance: FLUOROURACIL
     Indication: Colon cancer metastatic
     Dosage: 1700 MILLIGRAM, QOW OVER 44  HOURS
     Route: 041
  6. FLUOROURACIL [Suspect]
     Active Substance: FLUOROURACIL
     Dosage: 1700 MILLIGRAM, QOW OVER 44  HOURS
     Route: 041
     Dates: start: 20250722

REACTIONS (6)
  - Chest pain [Recovered/Resolved]
  - Myocardial infarction [Recovering/Resolving]
  - Hypertension [Recovered/Resolved]
  - Coronary artery occlusion [Recovering/Resolving]
  - Electrocardiogram ST segment elevation [Recovering/Resolving]
  - Sinus arrhythmia [Recovering/Resolving]

NARRATIVE: CASE EVENT DATE: 20250723
